FAERS Safety Report 7174329-0 (Version None)
Quarter: 2010Q4

REPORT INFORMATION
  Report Type: 
  Country: None (occurrence: None)
  Receive Date: 20101219
  Receipt Date: 20100324
  Transmission Date: 20110411
  Serious: No
  Sender: FDA-Public Use
  Company Number: US-AMGEN-KDL401807

PATIENT

DRUGS (3)
  1. ENBREL [Suspect]
     Indication: RHEUMATOID ARTHRITIS
     Dosage: 25 MG, 2 TIMES/WK
     Route: 058
     Dates: start: 20021125
  2. ENBREL [Suspect]
     Indication: PSORIASIS
  3. SULFASALAZINE [Concomitant]
     Dosage: UNK UNK, UNK

REACTIONS (1)
  - THERAPEUTIC RESPONSE DECREASED [None]
